FAERS Safety Report 4460726-0 (Version None)
Quarter: 2004Q3

REPORT INFORMATION
  Report Type: 
  Country: None (occurrence: None)
  Receive Date: 20040928
  Receipt Date: 20040722
  Transmission Date: 20050211
  Serious: No
  Sender: FDA-Public Use
  Company Number: US-GLAXOSMITHKLINE-A0519397A

PATIENT
  Age: 73 Year
  Sex: Male

DRUGS (8)
  1. ADVAIR DISKUS 100/50 [Suspect]
     Dosage: 1PUFF TWICE PER DAY
     Route: 055
     Dates: start: 20040301
  2. FLOVENT [Suspect]
     Route: 055
  3. COMBIVENT [Concomitant]
  4. LUMIGAN [Concomitant]
  5. ACIPHEX [Concomitant]
  6. THEOPHYLLINE [Concomitant]
  7. TEQUIN [Concomitant]
  8. VALTREX [Concomitant]

REACTIONS (5)
  - BONE PAIN [None]
  - HERPES ZOSTER [None]
  - HOARSENESS [None]
  - INFLUENZA [None]
  - PROSTATIC SPECIFIC ANTIGEN INCREASED [None]
